FAERS Safety Report 9783398 (Version 3)
Quarter: 2014Q1

REPORT INFORMATION
  Report Type: Spontaneous
  Country: IT (occurrence: IT)
  Receive Date: 20131226
  Receipt Date: 20140214
  Transmission Date: 20141002
  Serious: Yes (Hospitalization)
  Sender: FDA-Public Use
  Company Number: IT-BRISTOL-MYERS SQUIBB COMPANY-19939024

PATIENT
  Age: 77 Year
  Sex: Male

DRUGS (8)
  1. ERBITUX SOLN FOR INF 5MG/ML [Suspect]
     Indication: COLON CANCER
     Route: 042
     Dates: start: 20131028, end: 20131202
  2. IRINOTECAN HCL [Concomitant]
     Route: 042
     Dates: start: 20131028, end: 20131202
  3. ATENOLOL TABS 50 MG [Concomitant]
     Dosage: 1DF: 0.5DF
  4. MONOKET [Concomitant]
     Dosage: TABS:60MG?1DF: 2DF
  5. VASTAREL [Concomitant]
     Dosage: TABS:20MG?1DF: 2DF
  6. VYTORIN 10/40 [Concomitant]
     Dosage: 1DF: 10/40MG?TABS
  7. CARVASIN [Concomitant]
     Dosage: TABS:5MG
  8. CARDIOASPIRIN [Concomitant]
     Dosage: TABS

REACTIONS (2)
  - Angina pectoris [Recovered/Resolved]
  - Chest pain [Recovered/Resolved]
